FAERS Safety Report 14717681 (Version 1)
Quarter: 2018Q2

REPORT INFORMATION
  Report Type: Spontaneous
  Country: US (occurrence: US)
  Receive Date: 20180404
  Receipt Date: 20180404
  Transmission Date: 20180711
  Serious: No
  Sender: FDA-Public Use
  Company Number: US-SA-2018SA022715

PATIENT
  Age: 21 Year
  Sex: Male

DRUGS (1)
  1. DUPIXENT [Suspect]
     Active Substance: DUPILUMAB
     Indication: DERMATITIS ATOPIC
     Route: 058
     Dates: start: 20171128

REACTIONS (8)
  - Eye pain [Unknown]
  - Skin reaction [Unknown]
  - Eye irritation [Unknown]
  - Swelling face [Unknown]
  - Ocular hyperaemia [Unknown]
  - Eye discharge [Unknown]
  - Eye swelling [Unknown]
  - Eye disorder [Unknown]

NARRATIVE: CASE EVENT DATE: 20180208
